FAERS Safety Report 15209132 (Version 1)
Quarter: 2018Q3

REPORT INFORMATION
  Report Type: Spontaneous
  Country: GB (occurrence: GB)
  Receive Date: 20180727
  Receipt Date: 20180727
  Transmission Date: 20181010
  Serious: Yes (Hospitalization, Other)
  Sender: FDA-Public Use
  Company Number: GB-JNJFOC-20180732386

PATIENT
  Age: 68 Year
  Sex: Female
  Weight: 105 kg

DRUGS (4)
  1. BISOPROLOL [Concomitant]
     Active Substance: BISOPROLOL
     Route: 065
  2. XARELTO [Suspect]
     Active Substance: RIVAROXABAN
     Indication: ATRIAL FIBRILLATION
     Route: 048
  3. SIMVASTATIN. [Concomitant]
     Active Substance: SIMVASTATIN
     Route: 065
  4. RAMIPRIL. [Concomitant]
     Active Substance: RAMIPRIL
     Route: 065

REACTIONS (3)
  - Cerebrovascular accident [Recovered/Resolved with Sequelae]
  - Cerebral small vessel ischaemic disease [Unknown]
  - Hemiparesis [Recovering/Resolving]

NARRATIVE: CASE EVENT DATE: 20180607
